FAERS Safety Report 16280126 (Version 1)
Quarter: 2019Q2

REPORT INFORMATION
  Report Type: Spontaneous
  Country: US (occurrence: US)
  Receive Date: 20190401
  Receipt Date: 20190401
  Transmission Date: 20190711
  Serious: No
  Sender: FDA-Public Use
  Company Number: None

PATIENT
  Age: 42 Year
  Sex: Female

DRUGS (1)
  1. RASUVO [Suspect]
     Active Substance: METHOTREXATE SODIUM
     Indication: TENOSYNOVITIS
     Route: 058
     Dates: start: 20180403

REACTIONS (2)
  - Drug ineffective [None]
  - Hepatic enzyme increased [None]

NARRATIVE: CASE EVENT DATE: 20190301
